FAERS Safety Report 25413837 (Version 1)
Quarter: 2025Q2

REPORT INFORMATION
  Report Type: Spontaneous
  Country: AU (occurrence: None)
  Receive Date: 20250607
  Receipt Date: 20250607
  Transmission Date: 20250716
  Serious: Yes (Other)
  Sender: FDA-CTU
  Company Number: None

PATIENT
  Age: 39 Year
  Sex: Female
  Weight: 48 kg

DRUGS (1)
  1. CYMBALTA [Suspect]
     Active Substance: DULOXETINE HYDROCHLORIDE
     Indication: Trigeminal neuralgia

REACTIONS (47)
  - Withdrawal syndrome [None]
  - Electric shock sensation [None]
  - Head discomfort [None]
  - Headache [None]
  - Electric shock sensation [None]
  - Palpitations [None]
  - Nausea [None]
  - Vomiting [None]
  - Restlessness [None]
  - Insomnia [None]
  - Pruritus [None]
  - Hot flush [None]
  - Chills [None]
  - Dizziness [None]
  - Palpitations [None]
  - Fear [None]
  - Anxiety [None]
  - Agitation [None]
  - Irritability [None]
  - Anger [None]
  - Intrusive thoughts [None]
  - Depression [None]
  - Suicidal ideation [None]
  - Paranoia [None]
  - Panic attack [None]
  - Loss of personal independence in daily activities [None]
  - Bladder disorder [None]
  - Chest discomfort [None]
  - Chest pain [None]
  - Tremor [None]
  - Muscle twitching [None]
  - Diarrhoea [None]
  - Vibratory sense increased [None]
  - Respiration abnormal [None]
  - Hyperhidrosis [None]
  - Balance disorder [None]
  - Tinnitus [None]
  - Self-injurious ideation [None]
  - Visual impairment [None]
  - Formication [None]
  - Burning sensation [None]
  - Paraesthesia [None]
  - Photosensitivity reaction [None]
  - Hyperacusis [None]
  - Gastrointestinal disorder [None]
  - Metabolic disorder [None]
  - Immune system disorder [None]

NARRATIVE: CASE EVENT DATE: 20180117
